FAERS Safety Report 8151499-9 (Version None)
Quarter: 2012Q1

REPORT INFORMATION
  Report Type: 
  Country: None (occurrence: None)
  Receive Date: 20120220
  Receipt Date: 20120214
  Transmission Date: 20120608
  Serious: Yes (Other)
  Sender: FDA-Public Use
  Company Number: IT-ROCHE-1040144

PATIENT
  Sex: Male

DRUGS (12)
  1. FLUDARABINE PHOSPHATE [Suspect]
     Indication: CHRONIC LYMPHOCYTIC LEUKAEMIA
     Route: 041
     Dates: end: 20111230
  2. PARACETAMOL [Concomitant]
     Dates: start: 20111229, end: 20111229
  3. OMEPRAZOLE [Concomitant]
     Route: 048
     Dates: start: 20111102, end: 20111230
  4. TRIMETON [Concomitant]
     Route: 040
  5. LYRICA [Concomitant]
     Route: 048
     Dates: start: 20111102, end: 20111230
  6. CYCLOPHOSPHAMIDE [Suspect]
     Indication: CHRONIC LYMPHOCYTIC LEUKAEMIA
     Route: 042
     Dates: end: 20111230
  7. ACYCLOVIR [Concomitant]
     Route: 048
     Dates: start: 20111102, end: 20111230
  8. ZOFRAN [Concomitant]
     Route: 040
     Dates: start: 20111228, end: 20111230
  9. HYDROCORTISONE [Concomitant]
     Route: 042
     Dates: start: 20111229, end: 20111229
  10. MABTHERA [Suspect]
     Indication: CHRONIC LYMPHOCYTIC LEUKAEMIA
     Route: 042
     Dates: start: 20111014, end: 20111229
  11. ALLOPURINOL [Concomitant]
     Route: 048
     Dates: start: 20111102, end: 20111230
  12. METHYLPREDNISOLONE [Concomitant]
     Route: 042
     Dates: start: 20111229, end: 20111229

REACTIONS (3)
  - RASH [None]
  - HYPERPYREXIA [None]
  - FEBRILE NEUTROPENIA [None]
